FAERS Safety Report 6581112-3 (Version None)
Quarter: 2010Q1

REPORT INFORMATION
  Report Type: 
  Country: None (occurrence: None)
  Receive Date: 20100215
  Receipt Date: 20100208
  Transmission Date: 20100710
  Serious: Yes (Hospitalization, Other)
  Sender: FDA-Public Use
  Company Number: PHHY2009BR41300

PATIENT
  Sex: Female

DRUGS (2)
  1. FORASEQ [Suspect]
     Dosage: 12/200MCG 60/60
  2. FORASEQ [Suspect]
     Dosage: 12/400 MCG 60/60

REACTIONS (1)
  - DRUG DEPENDENCE [None]
